FAERS Safety Report 6648964-X (Version None)
Quarter: 2010Q1

REPORT INFORMATION
  Report Type: 
  Country: None (occurrence: None)
  Receive Date: 20100319
  Receipt Date: 20100311
  Transmission Date: 20100710
  Serious: Yes (Hospitalization)
  Sender: FDA-Public Use
  Company Number: 008816

PATIENT
  Age: 59 Year
  Sex: Female
  Weight: 63 kg

DRUGS (11)
  1. PLETAL [Suspect]
     Indication: CEREBRAL INFARCTION
     Dosage: 200 MG, DAILY DOSE ORAL
     Route: 048
     Dates: start: 20090601, end: 20100112
  2. AMLODIPINE [Suspect]
     Dosage: 5 MG, QAM ORAL
     Route: 048
     Dates: start: 20060801, end: 20100112
  3. MICARDIS [Suspect]
     Dosage: 40 MG, QAM; ORAL
     Route: 048
     Dates: start: 20060801, end: 20100112
  4. ALSETIN (PRAVASTATIN SODIUM) TABLET, 10 MG [Suspect]
     Dosage: 10 MG, QPM; ORAL
     Route: 048
     Dates: start: 20060801, end: 20100112
  5. ONON (PRANLUKAST) CAPSULE, 112.5 MG [Suspect]
     Dosage: 450 MG, DAILY DOSE; ORAL
     Route: 048
     Dates: start: 20090301, end: 20100112
  6. PROCATEROL HCL [Concomitant]
  7. INTAL [Concomitant]
  8. MUCODYNE (CARBOCISTEINE) [Concomitant]
  9. GASPORT (FAMOTIDINE) [Concomitant]
  10. FLUTIDE DISKUS (FLUTICASONE PROPIONATE) [Concomitant]
  11. MAOTO (HERBAL EXTRACTS NOS) [Concomitant]

REACTIONS (4)
  - ASTHMA [None]
  - EOSINOPHILIC PNEUMONIA [None]
  - RESPIRATORY DISTRESS [None]
  - VASCULITIS [None]
